FAERS Safety Report 15901307 (Version 4)
Quarter: 2019Q1

REPORT INFORMATION
  Report Type: Spontaneous
  Country: US (occurrence: US)
  Receive Date: 20190201
  Receipt Date: 20190225
  Transmission Date: 20190417
  Serious: Yes (Hospitalization, Other)
  Sender: FDA-Public Use
  Company Number: US-PFIZER INC-2019041732

PATIENT
  Age: 68 Year
  Sex: Female
  Weight: 89 kg

DRUGS (3)
  1. LYRICA [Suspect]
     Active Substance: PREGABALIN
     Dosage: 100 MG, 3X/DAY
     Route: 048
  2. LYRICA [Suspect]
     Active Substance: PREGABALIN
     Indication: PAIN
     Dosage: 100 MG, 3X/DAY (2 CAPSULES)
     Route: 048
  3. METFORMIN HCL [Concomitant]
     Active Substance: METFORMIN HYDROCHLORIDE
     Dosage: 500 MG, 1X/DAY
     Dates: start: 20181115

REACTIONS (6)
  - Visual acuity reduced [Unknown]
  - Fluid retention [Unknown]
  - Weight abnormal [Unknown]
  - Malaise [Unknown]
  - Myocardial infarction [Recovering/Resolving]
  - Disturbance in attention [Unknown]
